FAERS Safety Report 7402410-7 (Version None)
Quarter: 2011Q2

REPORT INFORMATION
  Report Type: 
  Country: None (occurrence: None)
  Receive Date: 20110408
  Receipt Date: 20110331
  Transmission Date: 20111010
  Serious: Yes (Hospitalization, Other)
  Sender: FDA-Public Use
  Company Number: IT-BRISTOL-MYERS SQUIBB COMPANY-15611833

PATIENT
  Age: 51 Year
  Sex: Male

DRUGS (6)
  1. ACETYLSALICYLIC ACID SRT [Concomitant]
  2. DARUNAVIR [Suspect]
  3. ATAZANAVIR [Suspect]
     Dates: start: 20050101
  4. RITONAVIR [Suspect]
     Dates: start: 20050101
  5. TENOFOVIR [Suspect]
     Dates: start: 20050101
  6. ABACAVIR [Suspect]
     Dates: start: 20050101

REACTIONS (4)
  - ACUTE MYOCARDIAL INFARCTION [None]
  - CEREBROVASCULAR ACCIDENT [None]
  - RENAL FAILURE [None]
  - SEPSIS [None]
